FAERS Safety Report 7557960-X (Version None)
Quarter: 2011Q2

REPORT INFORMATION
  Report Type: 
  Country: None (occurrence: None)
  Receive Date: 20110620
  Receipt Date: 20110610
  Transmission Date: 20111010
  Serious: Yes (Hospitalization)
  Sender: FDA-Public Use
  Company Number: JP-ASTRAZENECA-2011SE36612

PATIENT
  Age: 83 Year
  Sex: Female

DRUGS (6)
  1. CANDESARTAN CILEXETIL AND HYDROCHLOROTHIAZIDE [Suspect]
     Indication: HYPERTENSION
     Route: 048
     Dates: start: 20101201, end: 20110609
  2. ARICEPT [Concomitant]
     Route: 048
  3. CHINESE MEDICINES [Concomitant]
     Route: 065
  4. EPADEL S [Concomitant]
     Route: 048
  5. ZETIA [Concomitant]
     Route: 048
  6. ATELEC [Suspect]
     Route: 048
     Dates: start: 20100901

REACTIONS (1)
  - HYPOGLYCAEMIA [None]
